FAERS Safety Report 6361741-2 (Version None)
Quarter: 2009Q3

REPORT INFORMATION
  Report Type: 
  Country: None (occurrence: None)
  Receive Date: 20090918
  Receipt Date: 20090916
  Transmission Date: 20100115
  Serious: Yes (Life-Threatening, Hospitalization)
  Sender: FDA-Public Use
  Company Number: AU-BRISTOL-MYERS SQUIBB COMPANY-14781033

PATIENT
  Age: 71 Year
  Sex: Male

DRUGS (2)
  1. ETOPOSIDE [Suspect]
     Indication: SMALL CELL LUNG CANCER STAGE UNSPECIFIED
     Dosage: INJECTION NO MORE THAN 10ML OF THE ETOPOSIDE  THE ETOPOSIDE PHOSPHATE SALINE WAS RECHALLENGED
     Route: 042
     Dates: start: 20090611
  2. CARBOPLATIN [Suspect]
     Indication: SMALL CELL LUNG CANCER STAGE UNSPECIFIED
     Dates: start: 20080611

REACTIONS (5)
  - AGITATION [None]
  - BLOOD PRESSURE DECREASED [None]
  - DYSPNOEA [None]
  - SKIN DISCOLOURATION [None]
  - UNRESPONSIVE TO STIMULI [None]
